FAERS Safety Report 20143027 (Version 2)
Quarter: 2021Q4

REPORT INFORMATION
  Report Type: Spontaneous
  Country: NL (occurrence: NL)
  Receive Date: 20211202
  Receipt Date: 20211207
  Transmission Date: 20220303
  Serious: Yes (Other)
  Sender: FDA-Public Use
  Company Number: None

PATIENT
  Age: 62 Year
  Sex: Male

DRUGS (6)
  1. PREDNISOLONE [Suspect]
     Active Substance: PREDNISOLONE
     Indication: Toxic skin eruption
     Dosage: 40 MILLIGRAM DAILY
     Route: 065
     Dates: start: 202001
  2. PREDNISOLONE [Suspect]
     Active Substance: PREDNISOLONE
     Dosage: UNK, TAPPERED FURTHER IN TWO MONTHS
     Route: 065
     Dates: start: 2020
  3. CARBOPLATIN [Concomitant]
     Active Substance: CARBOPLATIN
     Indication: Non-small cell lung cancer metastatic
     Dosage: 4 CYCLICAL
     Route: 065
     Dates: start: 201803
  4. PEMETREXED [Concomitant]
     Active Substance: PEMETREXED
     Indication: Non-small cell lung cancer metastatic
     Dosage: UNK, CYCLICAL
     Route: 065
     Dates: start: 201805
  5. PEMETREXED [Concomitant]
     Active Substance: PEMETREXED
     Dosage: UNK, MAINTENANCE THERAPY ALONE
     Route: 065
     Dates: start: 2018
  6. NIVOLUMAB [Concomitant]
     Active Substance: NIVOLUMAB
     Indication: Non-small cell lung cancer metastatic
     Dosage: UNK, SCHEDULED FOR 8MONTHS
     Route: 065
     Dates: start: 201909

REACTIONS (6)
  - Decreased appetite [Recovered/Resolved]
  - Weight decreased [Recovered/Resolved]
  - Speech disorder [Recovered/Resolved]
  - Swollen tongue [Recovered/Resolved]
  - Condition aggravated [Recovered/Resolved]
  - Mucocutaneous leishmaniasis [Recovered/Resolved]

NARRATIVE: CASE EVENT DATE: 20200101
